FAERS Safety Report 14639774 (Version 1)
Quarter: 2018Q1

REPORT INFORMATION
  Report Type: Spontaneous
  Country: US (occurrence: US)
  Receive Date: 20180315
  Receipt Date: 20180315
  Transmission Date: 20180509
  Serious: No
  Sender: FDA-Public Use
  Company Number: US-TEVA-2017-US-839880

PATIENT
  Age: 60 Year
  Sex: Female
  Weight: 96.14 kg

DRUGS (3)
  1. MUCUS ER [Suspect]
     Active Substance: GUAIFENESIN
     Indication: UPPER RESPIRATORY TRACT CONGESTION
     Route: 048
     Dates: start: 2016, end: 2016
  2. MUCUS ER [Suspect]
     Active Substance: GUAIFENESIN
     Dosage: 1200 MILLIGRAM DAILY;
     Route: 048
     Dates: start: 20171215, end: 20171215
  3. MUCUS ER [Suspect]
     Active Substance: GUAIFENESIN
     Dosage: 2400 MILLIGRAM DAILY;
     Route: 048
     Dates: start: 20171214, end: 20171214

REACTIONS (1)
  - Vomiting [Recovered/Resolved]

NARRATIVE: CASE EVENT DATE: 20171214
